FAERS Safety Report 6870705-1 (Version None)
Quarter: 2010Q3

REPORT INFORMATION
  Report Type: 
  Country: None (occurrence: None)
  Receive Date: 20100723
  Receipt Date: 20100224
  Transmission Date: 20110219
  Serious: No
  Sender: FDA-Public Use
  Company Number: A0847507A

PATIENT
  Age: 35 Year
  Sex: Male

DRUGS (1)
  1. OLUX [Suspect]
     Indication: PSORIASIS
     Route: 061

REACTIONS (2)
  - DRUG ADMINISTRATION ERROR [None]
  - URINE ALCOHOL TEST POSITIVE [None]
